FAERS Safety Report 17453137 (Version 2)
Quarter: 2020Q1

REPORT INFORMATION
  Report Type: Spontaneous
  Country: CH (occurrence: CH)
  Receive Date: 20200224
  Receipt Date: 20200317
  Transmission Date: 20200409
  Serious: Yes (Hospitalization, Disabling)
  Sender: FDA-Public Use
  Company Number: CH-009507513-2002CHE007508

PATIENT
  Age: 65 Year
  Sex: Female
  Weight: 81.5 kg

DRUGS (11)
  1. KALCIPOS D3 [Concomitant]
     Dosage: 500/800 0-1-0
     Route: 048
     Dates: start: 2015
  2. KEYTRUDA [Suspect]
     Active Substance: PEMBROLIZUMAB
     Dosage: 200 MG IV OVER 30 MIN EVERY 3 WEEKS
     Route: 041
     Dates: start: 20190509, end: 20191227
  3. TRITTICO [Concomitant]
     Active Substance: TRAZODONE HYDROCHLORIDE
     Indication: DEPRESSION
     Dosage: 50 MG 0-0-0-1 (50 MG ONCE DAILY)
     Route: 048
     Dates: start: 201912, end: 20200127
  4. SURMONTIL [Suspect]
     Active Substance: TRIMIPRAMINE MALEATE
     Dosage: 50 MG 0-0-0-1 (50 MG ONCE DAILY)
     Route: 048
     Dates: start: 2015, end: 201912
  5. FEMARA [Suspect]
     Active Substance: LETROZOLE
     Dosage: 2.5 MG 0-0-0-1 (2.5 MG ONCE DAILY)
     Route: 048
     Dates: start: 201512, end: 201906
  6. FEMARA [Suspect]
     Active Substance: LETROZOLE
     Dosage: 2.5 MG 0-0-0-1 (2.5 MG ONCE DAILY), RESUMED
     Route: 048
     Dates: start: 202001
  7. BELOC-ZOK [Suspect]
     Active Substance: METOPROLOL SUCCINATE
     Dosage: 100 MG 1-0-0 (EXTENDED RELEASE 100 MG ONCE DAILY)
     Route: 048
     Dates: start: 2015
  8. CYMBALTA [Suspect]
     Active Substance: DULOXETINE HYDROCHLORIDE
     Indication: DEPRESSION
     Dosage: 60 MG 1-0-0 (60 MG ONCE DAILY)
     Route: 048
     Dates: start: 2015
  9. ESOMEP [Suspect]
     Active Substance: ESOMEPRAZOLE
     Dosage: 40 MG WHEN REQUIRED FOR DYSPEPSIA (PREVIOUSLY OMEPRAZOLE)
     Route: 048
     Dates: start: 201903
  10. ROSUVASTATIN SANDOZ [Concomitant]
     Active Substance: ROSUVASTATIN CALCIUM
     Dosage: 10 MG 0-0-1 (10 MG ONCE DAILY)
     Route: 048
     Dates: start: 2016
  11. PROLIA [Concomitant]
     Active Substance: DENOSUMAB
     Dosage: EVERY 6 MONTHS
     Route: 058
     Dates: start: 201704, end: 201904

REACTIONS (6)
  - Hypophysitis [Not Recovered/Not Resolved]
  - Hypothyroidism [Not Recovered/Not Resolved]
  - Dry mouth [Not Recovered/Not Resolved]
  - Condition aggravated [Not Recovered/Not Resolved]
  - Renal failure [Recovering/Resolving]
  - Polyglandular autoimmune syndrome type II [Not Recovered/Not Resolved]

NARRATIVE: CASE EVENT DATE: 201805
